FAERS Safety Report 7202909-2 (Version None)
Quarter: 2010Q4

REPORT INFORMATION
  Report Type: 
  Country: None (occurrence: None)
  Receive Date: 20101229
  Receipt Date: 20101228
  Transmission Date: 20110411
  Serious: Yes (Other)
  Sender: FDA-Public Use
  Company Number: US-PFIZER INC-2010180549

PATIENT
  Sex: Female
  Weight: 65.76 kg

DRUGS (2)
  1. CELEBREX [Suspect]
     Indication: BACK PAIN
     Dosage: 200 MG, 2X/DAY
     Route: 048
     Dates: start: 20101210, end: 20101215
  2. TRAMADOL [Concomitant]
     Indication: BACK PAIN
     Dosage: UNK

REACTIONS (2)
  - ASTHMA [None]
  - NAUSEA [None]
